FAERS Safety Report 5834832-X (Version None)
Quarter: 2008Q3

REPORT INFORMATION
  Report Type: 
  Country: None (occurrence: None)
  Receive Date: 20080805
  Receipt Date: 20080725
  Transmission Date: 20090109
  Serious: Yes (Death, Life-Threatening)
  Sender: FDA-Public Use
  Company Number: DE-ELI_LILLY_AND_COMPANY-DE200807000100

PATIENT
  Sex: Female

DRUGS (8)
  1. BYETTA [Suspect]
     Indication: TYPE 2 DIABETES MELLITUS
     Dosage: 5 UG, 2/D
     Route: 058
     Dates: start: 20080513
  2. RAMIPRIL [Concomitant]
  3. METFORMIN HCL [Concomitant]
  4. SPIRONOLACTONE [Concomitant]
  5. TORSEMIDE [Concomitant]
  6. SYMBICORT [Concomitant]
  7. ALLOPURINOL [Concomitant]
  8. SIMVASTATIN [Concomitant]

REACTIONS (1)
  - MYOCARDIAL INFARCTION [None]
